FAERS Safety Report 16076724 (Version 1)
Quarter: 2019Q1

REPORT INFORMATION
  Report Type: Spontaneous
  Country: US (occurrence: US)
  Receive Date: 20190315
  Receipt Date: 20190315
  Transmission Date: 20190418
  Serious: No
  Sender: FDA-Public Use
  Company Number: US-BAYER-2019-052551

PATIENT
  Age: 92 Year
  Sex: Female
  Weight: 42 kg

DRUGS (2)
  1. MIRALAX [Suspect]
     Active Substance: POLYETHYLENE GLYCOL 3350
     Indication: GASTROINTESTINAL DISORDER
     Dosage: UNK, HALF DOSE
     Route: 048
  2. ONE A DAY MULTI VITAMIN + MINERALS [ASCORBIC ACID;BETACAROTENE;CAL [Concomitant]
     Dosage: UNK

REACTIONS (2)
  - Abdominal distension [Recovered/Resolved]
  - Flatulence [Recovered/Resolved]
